FAERS Safety Report 7946824-5 (Version None)
Quarter: 2011Q4

REPORT INFORMATION
  Report Type: 
  Country: None (occurrence: None)
  Receive Date: 20111129
  Receipt Date: 20111115
  Transmission Date: 20120403
  Serious: Yes (Other)
  Sender: FDA-Public Use
  Company Number: AU-CELGENEUS-008-21660-11112189

PATIENT
  Sex: Female

DRUGS (1)
  1. ABRAXANE [Suspect]
     Route: 065

REACTIONS (2)
  - ANAPHYLACTIC REACTION [None]
  - OFF LABEL USE [None]
